FAERS Safety Report 12320235 (Version 2)
Quarter: 2016Q3

REPORT INFORMATION
  Report Type: Report from Study
  Country: IT (occurrence: IT)
  Receive Date: 20160429
  Receipt Date: 20160720
  Transmission Date: 20161109
  Serious: Yes (Hospitalization, Other)
  Sender: FDA-Public Use
  Company Number: IT-MYLANLABS-2016M1017340

PATIENT

DRUGS (4)
  1. ATOSIBAN [Suspect]
     Active Substance: ATOSIBAN
     Indication: ACUTE PULMONARY OEDEMA
  2. FUROSEMIDE. [Suspect]
     Active Substance: FUROSEMIDE
     Indication: ACUTE PULMONARY OEDEMA
  3. SULPROSTONE [Suspect]
     Active Substance: SULPROSTONE
     Indication: ACUTE PULMONARY OEDEMA
  4. NICARDIPINE [Suspect]
     Active Substance: NICARDIPINE
     Indication: PREMATURE LABOUR
     Route: 065

REACTIONS (3)
  - Acute pulmonary oedema [Recovered/Resolved]
  - Maternal exposure during pregnancy [Unknown]
  - Off label use [Recovered/Resolved]
